FAERS Safety Report 7853463-3 (Version None)
Quarter: 2011Q4

REPORT INFORMATION
  Report Type: 
  Country: None (occurrence: None)
  Receive Date: 20111026
  Receipt Date: 20110119
  Transmission Date: 20120403
  Serious: Yes (Hospitalization)
  Sender: FDA-Public Use
  Company Number: DE-UCBSA-002262

PATIENT
  Age: 76 Year
  Sex: Male
  Weight: 75 kg

DRUGS (19)
  1. SEROQUEL [Concomitant]
     Dosage: 100 MG 1/2-1/2-1/2
     Dates: start: 20090101
  2. STALEVO 100 [Concomitant]
     Indication: PARKINSON'S DISEASE
     Dates: start: 20080101
  3. MADOPAR [Concomitant]
     Indication: PARKINSON'S DISEASE
     Dates: start: 20100706
  4. AZILECT [Concomitant]
     Indication: PARKINSON'S DISEASE
     Dates: start: 20080101
  5. NEUPRO [Suspect]
     Indication: PARKINSON'S DISEASE
     Route: 062
     Dates: end: 20090109
  6. REQUIP [Concomitant]
     Dates: start: 20090117, end: 20090124
  7. SEROQUEL [Concomitant]
     Dates: start: 20100706
  8. REQUIP [Concomitant]
     Dates: start: 20090725
  9. NEXIUM [Concomitant]
     Dates: start: 20100706
  10. SEROQUEL [Concomitant]
     Indication: DEPRESSION
     Dates: end: 20090101
  11. REQUIP [Concomitant]
     Indication: PARKINSON'S DISEASE
     Dates: start: 20090109, end: 20090116
  12. NEXIUM [Concomitant]
     Indication: GASTRITIS
     Dates: end: 20100706
  13. SEROQUEL [Concomitant]
     Dosage: 150 MG 1/2-1/2-1/2
     Dates: start: 20090101, end: 20090917
  14. MADOPAR [Concomitant]
  15. AZILECT [Concomitant]
     Dates: start: 20100606
  16. REQUIP [Concomitant]
     Dates: start: 20090125, end: 20090201
  17. MADOPAR DEPOT [Concomitant]
     Indication: PARKINSON'S DISEASE
     Dosage: 100 MG 1X AS REQUIRED BEFORE SLEEPING
     Dates: start: 20081010
  18. METOPROLOL SUCCINATE [Concomitant]
     Indication: HYPERTONIA
  19. REQUIP [Concomitant]
     Dates: start: 20090202, end: 20090724

REACTIONS (1)
  - NEUROPATHY PERIPHERAL [None]
